FAERS Safety Report 7733679-7 (Version None)
Quarter: 2011Q3

REPORT INFORMATION
  Report Type: 
  Country: None (occurrence: None)
  Receive Date: 20110907
  Receipt Date: 20110826
  Transmission Date: 20111222
  Serious: Yes (Other)
  Sender: FDA-Public Use
  Company Number: GB-BRISTOL-MYERS SQUIBB COMPANY-16016636

PATIENT
  Age: 61 Year
  Sex: Male

DRUGS (4)
  1. CLOZAPINE [Suspect]
     Indication: SCHIZOPHRENIA
     Dosage: 26SEP05-UNK,28JUN10-UNK
     Route: 048
     Dates: start: 20050926
  2. ESOMEPRAZOLE SODIUM [Suspect]
     Indication: OESOPHAGITIS
     Route: 048
     Dates: start: 19901123
  3. METFORMIN HCL [Suspect]
     Indication: DIABETES MELLITUS
     Route: 048
     Dates: start: 20090101
  4. LEVOTHYROXINE SODIUM [Suspect]
     Indication: HYPOTHYROIDISM
     Route: 048
     Dates: start: 20100728

REACTIONS (4)
  - METASTASES TO THE MEDIASTINUM [None]
  - DIABETES MELLITUS [None]
  - OESOPHAGEAL CARCINOMA [None]
  - MALAISE [None]
